FAERS Safety Report 19964122 (Version 1)
Quarter: 2021Q4

REPORT INFORMATION
  Report Type: Spontaneous
  Country: US (occurrence: US)
  Receive Date: 20211018
  Receipt Date: 20211018
  Transmission Date: 20220303
  Serious: Yes (Hospitalization)
  Sender: FDA-Public Use
  Company Number: None

PATIENT
  Age: 74 Year
  Sex: Male
  Weight: 103 kg

DRUGS (1)
  1. APIXABAN [Suspect]
     Active Substance: APIXABAN
     Indication: Atrial fibrillation
     Route: 048
     Dates: start: 20210729, end: 20210803

REACTIONS (10)
  - Gastrointestinal haemorrhage [None]
  - Cholecystectomy [None]
  - Liver abscess [None]
  - Blood pressure decreased [None]
  - Packed red blood cell transfusion [None]
  - Red blood cell count decreased [None]
  - Haemoglobin decreased [None]
  - Haematocrit decreased [None]
  - Prothrombin time prolonged [None]
  - International normalised ratio increased [None]

NARRATIVE: CASE EVENT DATE: 20210803
